FAERS Safety Report 18391466 (Version 1)
Quarter: 2020Q4

REPORT INFORMATION
  Report Type: Spontaneous
  Country: US (occurrence: US)
  Receive Date: 20201016
  Receipt Date: 20201016
  Transmission Date: 20210114
  Serious: No
  Sender: FDA-Public Use
  Company Number: US-BAYER-2020-221927

PATIENT
  Age: 82 Year
  Sex: Female

DRUGS (4)
  1. ASCORBIC ACID. [Suspect]
     Active Substance: ASCORBIC ACID
  2. STATIN [SIMVASTATIN] [Suspect]
     Active Substance: SIMVASTATIN
  3. MIRALAX [Suspect]
     Active Substance: POLYETHYLENE GLYCOL 3350
     Indication: GASTROINTESTINAL DISORDER
     Dosage: USED ACCORDING TO LABELED DIRECTIONS
     Route: 048
     Dates: start: 20200928, end: 20201012
  4. VITAMIN D [VITAMIN D NOS] [Suspect]
     Active Substance: VITAMIN D NOS

REACTIONS (2)
  - Incorrect product administration duration [None]
  - Abdominal pain [None]
